FAERS Safety Report 4754017-8 (Version None)
Quarter: 2005Q3

REPORT INFORMATION
  Report Type: 
  Country: None (occurrence: None)
  Receive Date: 20050826
  Receipt Date: 20050812
  Transmission Date: 20060218
  Serious: Yes (Life-Threatening)
  Sender: FDA-Public Use
  Company Number: 05GER0171

PATIENT
  Age: 85 Year
  Sex: Male

DRUGS (13)
  1. AGGRASTAT [Suspect]
     Dosage: 13.0ML/DAILY
     Dates: start: 20050321, end: 20050322
  2. CLOPIDOGREL BISULFATE [Suspect]
     Indication: CORONARY ARTERY DISEASE
     Dosage: 75 MG QD
     Dates: start: 20050222, end: 20050322
  3. HEPARIN [Concomitant]
  4. ISOSORBIDE DINITRATE [Concomitant]
  5. METOPROLOL SUCCINATE [Concomitant]
  6. MOLSIDOMINE (MOLSIDOMINE) [Concomitant]
  7. RAMIPRIL [Concomitant]
  8. SIMVASTATIN [Concomitant]
  9. SPIRONOLACTONE [Concomitant]
  10. ASPIRIN (ACETYLSALICYLIC ACID) (TABLET) [Concomitant]
  11. DIGITOIXIN (DIGITOIXIN) [Concomitant]
  12. ESOMEPRAZOLE MAGNESIUM(ESOMEPRAZOLE) [Concomitant]
  13. FUROSEMDIE (FUROSEMDIE) [Concomitant]

REACTIONS (2)
  - PETECHIAE [None]
  - THROMBOCYTOPENIA [None]
